FAERS Safety Report 25172463 (Version 1)
Quarter: 2025Q2

REPORT INFORMATION
  Report Type: Spontaneous
  Country: US (occurrence: None)
  Receive Date: 20250407
  Receipt Date: 20250407
  Transmission Date: 20250716
  Serious: Yes (Other)
  Sender: FDA-CTU
  Company Number: None

PATIENT
  Age: 84 Year
  Sex: Female
  Weight: 47.25 kg

DRUGS (9)
  1. MELOXICAM [Suspect]
     Active Substance: MELOXICAM
     Indication: Seizure
     Dosage: OTHER QUANTITY : 15 TABLET(S);?FREQUENCY : DAILY;?
     Route: 048
     Dates: start: 20250115, end: 20250117
  2. MELOXICAM [Suspect]
     Active Substance: MELOXICAM
     Indication: Pain
  3. MELOXICAM [Suspect]
     Active Substance: MELOXICAM
     Indication: Asthenia
  4. MELOXICAM [Suspect]
     Active Substance: MELOXICAM
     Indication: Pain
  5. MELOXICAM [Suspect]
     Active Substance: MELOXICAM
     Indication: Asthenia
  6. BROMOCRIPTINE [Concomitant]
     Active Substance: BROMOCRIPTINE
  7. LEVOTHYROXINE [Concomitant]
     Active Substance: LEVOTHYROXINE
  8. VITAMIN D [Concomitant]
     Active Substance: VITAMIN D NOS
  9. CALCIUM [Concomitant]
     Active Substance: CALCIUM

REACTIONS (2)
  - Chromaturia [None]
  - Abdominal pain upper [None]

NARRATIVE: CASE EVENT DATE: 20250115
